FAERS Safety Report 5118685-3 (Version None)
Quarter: 2006Q3

REPORT INFORMATION
  Report Type: 
  Country: None (occurrence: None)
  Receive Date: 20060927
  Receipt Date: 20060920
  Transmission Date: 20061208
  Serious: Yes (Hospitalization, Other)
  Sender: FDA-Public Use
  Company Number: HQWYE926320SEP06

PATIENT
  Age: 83 Year
  Sex: Female

DRUGS (3)
  1. ETODOLAC [Suspect]
     Indication: HIP ARTHROPLASTY
     Dosage: 400 MG 1X PER 1 DAY ORAL
     Route: 048
     Dates: start: 20060413, end: 20060424
  2. CARVEDILOL [Concomitant]
  3. REBAMIPIDE (REBAMIPIDE) [Concomitant]

REACTIONS (3)
  - EOSINOPHILIC PNEUMONIA ACUTE [None]
  - LYMPHOCYTE STIMULATION TEST POSITIVE [None]
  - RESPIRATORY DISTRESS [None]
